FAERS Safety Report 13102186 (Version 2)
Quarter: 2017Q1

REPORT INFORMATION
  Report Type: Spontaneous
  Country: CH (occurrence: IR)
  Receive Date: 20170110
  Receipt Date: 20170203
  Transmission Date: 20170428
  Serious: Yes (Hospitalization)
  Sender: FDA-Public Use
  Company Number: CH-LPDUSPRD-20170012

PATIENT
  Age: 33 Year
  Sex: Female
  Weight: 64 kg

DRUGS (2)
  1. FERINJECT [Suspect]
     Active Substance: FERRIC CARBOXYMALTOSE
     Dosage: 500MG, 1 IN 1 TOTAL
     Route: 041
     Dates: start: 20161130, end: 20161130
  2. NORMAL SALINE SERUM [Concomitant]
     Dosage: 500 CC
     Route: 065

REACTIONS (6)
  - Dyspnoea [Unknown]
  - Erythema [Unknown]
  - Swelling face [Unknown]
  - Hyperventilation [Unknown]
  - Local swelling [Unknown]
  - Flushing [Unknown]

NARRATIVE: CASE EVENT DATE: 20161130
